FAERS Safety Report 6823884-6 (Version None)
Quarter: 2010Q3

REPORT INFORMATION
  Report Type: 
  Country: None (occurrence: None)
  Receive Date: 20100708
  Receipt Date: 20060912
  Transmission Date: 20110219
  Serious: No
  Sender: FDA-Public Use
  Company Number: US-PFIZER INC-2006112206

PATIENT
  Age: 49 Year
  Sex: Female

DRUGS (11)
  1. CHANTIX [Suspect]
     Dates: start: 20060101
  2. MICARDIS [Concomitant]
  3. SULAR [Concomitant]
  4. ALL OTHER THERAPEUTIC PRODUCTS [Concomitant]
  5. PREVACID [Concomitant]
  6. LEVOXYL [Concomitant]
  7. ACETYLSALICYLIC ACID [Concomitant]
  8. REMERON [Concomitant]
  9. KLONOPIN [Concomitant]
  10. PREMPRO [Concomitant]
  11. SPIRIVA [Concomitant]

REACTIONS (3)
  - DIARRHOEA [None]
  - DIZZINESS [None]
  - FATIGUE [None]
